FAERS Safety Report 7424607-2 (Version None)
Quarter: 2011Q2

REPORT INFORMATION
  Report Type: 
  Country: None (occurrence: None)
  Receive Date: 20110419
  Receipt Date: 20110411
  Transmission Date: 20111010
  Serious: Yes (Other)
  Sender: FDA-Public Use
  Company Number: US-B.I. PHARMACEUTICALS,INC./RIDGEFIELD-2011-BP-01341BP

PATIENT
  Age: 70 Year
  Sex: Female

DRUGS (6)
  1. DIOVAN [Concomitant]
     Indication: HYPERTENSION
  2. COREG [Concomitant]
     Dosage: 25 MG
  3. PRADAXA [Suspect]
     Indication: ATRIAL FIBRILLATION
     Dosage: 300 MG
     Route: 048
     Dates: start: 20101209
  4. VITAMINS [Concomitant]
  5. ASPIRIN [Concomitant]
     Dosage: 81 MG
  6. FISH OIL [Concomitant]

REACTIONS (1)
  - BREAST CANCER [None]
